FAERS Safety Report 19647640 (Version 1)
Quarter: 2021Q3

REPORT INFORMATION
  Report Type: Report from Study
  Country: TR (occurrence: TR)
  Receive Date: 20210802
  Receipt Date: 20210802
  Transmission Date: 20211014
  Serious: Yes (Life-Threatening)
  Sender: FDA-Public Use
  Company Number: TR-PFIZER INC-202100944491

PATIENT
  Age: 24 Year
  Sex: Female
  Weight: 107 kg

DRUGS (5)
  1. SECUKINUMAB. [Suspect]
     Active Substance: SECUKINUMAB
     Indication: ANKYLOSING SPONDYLITIS
     Dosage: UNK
     Route: 058
     Dates: start: 20190724, end: 20190801
  2. COSENTYX [Suspect]
     Active Substance: SECUKINUMAB
     Indication: ANKYLOSING SPONDYLITIS
     Dosage: UNK
  3. CELECOXIB. [Suspect]
     Active Substance: CELECOXIB
     Dosage: 200 MG
     Dates: start: 20190804
  4. RANTUDIL [Suspect]
     Active Substance: ACEMETACIN
     Dosage: UNK
     Dates: start: 20190804
  5. PAROL PLUS [CAFFEINE;PARACETAMOL] [Suspect]
     Active Substance: ACETAMINOPHEN\CAFFEINE
     Dosage: UNK
     Dates: start: 20190804

REACTIONS (1)
  - Depression suicidal [Recovered/Resolved]

NARRATIVE: CASE EVENT DATE: 20190804
